FAERS Safety Report 5742420-9 (Version None)
Quarter: 2008Q2

REPORT INFORMATION
  Report Type: 
  Country: None (occurrence: None)
  Receive Date: 20080519
  Receipt Date: 20080512
  Transmission Date: 20081010
  Serious: Yes (Other)
  Sender: FDA-Public Use
  Company Number: US-JNJFOC-20050803930

PATIENT
  Sex: Male
  Weight: 78.02 kg

DRUGS (3)
  1. LEVAQUIN [Suspect]
     Indication: UPPER RESPIRATORY TRACT INFECTION
     Route: 048
  2. SUDAFED 12 HOUR [Concomitant]
  3. PHENERGAN DM [Concomitant]
     Route: 065

REACTIONS (8)
  - ARTHRALGIA [None]
  - MUSCLE ATROPHY [None]
  - MUSCULAR WEAKNESS [None]
  - MYALGIA [None]
  - NEUROPATHY PERIPHERAL [None]
  - PARAESTHESIA [None]
  - RHABDOMYOLYSIS [None]
  - TENDON PAIN [None]
